FAERS Safety Report 14137204 (Version 1)
Quarter: 2017Q4

REPORT INFORMATION
  Report Type: Spontaneous
  Country: JP (occurrence: JP)
  Receive Date: 20171027
  Receipt Date: 20171027
  Transmission Date: 20180321
  Serious: Yes (Hospitalization)
  Sender: FDA-Public Use
  Company Number: JP-GLAXOSMITHKLINE-JP2017JPN162477

PATIENT
  Age: 83 Year
  Sex: Female

DRUGS (1)
  1. RELVAR ELLIPTA [Suspect]
     Active Substance: FLUTICASONE FUROATE\VILANTEROL TRIFENATATE
     Route: 055

REACTIONS (3)
  - Gastrointestinal disorder [Recovering/Resolving]
  - Fungal infection [Unknown]
  - Dysphonia [Unknown]
